FAERS Safety Report 12496168 (Version 1)
Quarter: 2016Q2

REPORT INFORMATION
  Report Type: Spontaneous
  Country: IT (occurrence: IT)
  Receive Date: 20160624
  Receipt Date: 20160624
  Transmission Date: 20160815
  Serious: Yes (Hospitalization)
  Sender: FDA-Public Use
  Company Number: IT-PFIZER INC-2016314798

PATIENT
  Age: 89 Year
  Sex: Female

DRUGS (8)
  1. ALPRAZOLAM. [Suspect]
     Active Substance: ALPRAZOLAM
     Indication: ANXIETY
     Dosage: 10 GTT, DAILY
     Route: 048
     Dates: start: 20150101, end: 20160307
  2. CARDICOR [Concomitant]
     Active Substance: BISOPROLOL
     Dosage: UNK
  3. LENDORMIN [Concomitant]
     Active Substance: BROTIZOLAM
     Dosage: UNK
  4. LASIX [Concomitant]
     Active Substance: FUROSEMIDE
     Dosage: UNK
  5. NITROCOR [Concomitant]
     Active Substance: NITROGLYCERIN
     Dosage: UNK
  6. CARDIOASPIRIN [Concomitant]
     Active Substance: ASPIRIN
     Dosage: UNK
  7. TRIATEC /00885601/ [Concomitant]
     Active Substance: RAMIPRIL
     Dosage: UNK
  8. METFORMIN [Concomitant]
     Active Substance: METFORMIN HYDROCHLORIDE
     Dosage: UNK

REACTIONS (2)
  - Dysarthria [Unknown]
  - Sopor [Unknown]

NARRATIVE: CASE EVENT DATE: 20160307
